FAERS Safety Report 14125777 (Version 1)
Quarter: 2017Q4

REPORT INFORMATION
  Report Type: Spontaneous
  Country: US (occurrence: US)
  Receive Date: 20171025
  Receipt Date: 20171025
  Transmission Date: 20180321
  Serious: Yes (Hospitalization, Other)
  Sender: FDA-Public Use
  Company Number: US-GLAXOSMITHKLINE-US2017162908

PATIENT
  Age: 61 Year
  Sex: Female

DRUGS (7)
  1. TYLENOL [Concomitant]
     Active Substance: ACETAMINOPHEN
  2. PLAQUENIL [Concomitant]
     Active Substance: HYDROXYCHLOROQUINE SULFATE
  3. BENLYSTA [Suspect]
     Active Substance: BELIMUMAB
     Indication: SYSTEMIC LUPUS ERYTHEMATOSUS
     Dosage: UNK UNK, CYC
     Route: 041
     Dates: start: 201606
  4. TRILEPTAL [Concomitant]
     Active Substance: OXCARBAZEPINE
  5. PREDNISONE. [Concomitant]
     Active Substance: PREDNISONE
  6. NATURE-THROID [Concomitant]
     Active Substance: THYROID, PORCINE
  7. TOPAMAX [Concomitant]
     Active Substance: TOPIRAMATE

REACTIONS (6)
  - Facial pain [Recovering/Resolving]
  - Pain in jaw [Recovering/Resolving]
  - Glossodynia [Recovering/Resolving]
  - Peripheral nerve decompression [Recovering/Resolving]
  - Toothache [Recovering/Resolving]
  - Trigeminal neuralgia [Recovering/Resolving]

NARRATIVE: CASE EVENT DATE: 201704
